FAERS Safety Report 8415005-3 (Version None)
Quarter: 2012Q2

REPORT INFORMATION
  Report Type: 
  Country: None (occurrence: None)
  Receive Date: 20120606
  Receipt Date: 20120530
  Transmission Date: 20120825
  Serious: No
  Sender: FDA-Public Use
  Company Number: US-ASTRAZENECA-2011SE41552

PATIENT
  Age: 696 Month
  Sex: Female

DRUGS (18)
  1. COUMADIN [Concomitant]
     Dates: start: 20090324
  2. CELEBREX [Concomitant]
     Dates: start: 20090324
  3. FUROSEMIDE [Concomitant]
     Dates: start: 20090324
  4. LEVOTHYROXINE SODIUM [Concomitant]
     Dates: start: 20090324
  5. NEXIUM [Suspect]
     Route: 048
     Dates: start: 20090324
  6. SPIRONOLACTONE [Concomitant]
     Dates: start: 20090324
  7. DARVOCET-N 50 [Concomitant]
     Dosage: 100 TO 650 MG
     Dates: start: 20090324
  8. LORTAB [Concomitant]
     Indication: PAIN
     Dosage: 5 TO 50 MG   ONE TIME ONLY
     Dates: start: 20090324
  9. NEXIUM [Suspect]
     Indication: GASTROOESOPHAGEAL REFLUX DISEASE
     Route: 048
     Dates: start: 20060101
  10. CALCIUM CARBONATE [Concomitant]
  11. ALPROLAZAM [Concomitant]
     Indication: ANXIETY
     Dates: start: 20090324
  12. ROZEREM [Concomitant]
     Dates: start: 20090324
  13. SERTRALINE HYDROCHLORIDE [Concomitant]
     Dates: start: 20090324
  14. FLEXERIL [Concomitant]
     Dates: start: 20090324
  15. CLONIDINE [Concomitant]
     Indication: HYPERTENSION
     Dates: start: 20090324
  16. PROTONIX [Concomitant]
  17. AMLODIPINE [Concomitant]
     Dates: start: 20090324
  18. CRESTOR [Concomitant]
     Dates: start: 20090324

REACTIONS (9)
  - CERVICAL VERTEBRAL FRACTURE [None]
  - ARTHRALGIA [None]
  - FALL [None]
  - NIGHTMARE [None]
  - TIBIA FRACTURE [None]
  - OSTEOPOROSIS [None]
  - UPPER LIMB FRACTURE [None]
  - ANXIETY [None]
  - DEPRESSION [None]
